FAERS Safety Report 10358211 (Version 2)
Quarter: 2014Q3

REPORT INFORMATION
  Report Type: Spontaneous
  Country: US (occurrence: US)
  Receive Date: 20140801
  Receipt Date: 20140929
  Transmission Date: 20150326
  Serious: Yes (Other)
  Sender: FDA-Public Use
  Company Number: US-009507513-1407USA014322

PATIENT
  Sex: Female

DRUGS (8)
  1. DIAMOX SEQUELS [Concomitant]
     Active Substance: ACETAZOLAMIDE
  2. BUSPAR [Concomitant]
     Active Substance: BUSPIRONE HYDROCHLORIDE
  3. BUSPIRONE HYDROCHLORIDE. [Concomitant]
     Active Substance: BUSPIRONE HYDROCHLORIDE
     Dosage: 20 MG, BID
  4. LAMICTAL [Suspect]
     Active Substance: LAMOTRIGINE
     Indication: PARTIAL SEIZURES
     Dosage: 300 MG, DAILY IN THE MORNING
     Route: 065
     Dates: start: 20131119
  5. FOLIC ACID. [Concomitant]
     Active Substance: FOLIC ACID
     Dosage: 2 MG, QAM
  6. FELBATOL [Suspect]
     Active Substance: FELBAMATE
     Indication: PARTIAL SEIZURES
     Dosage: 600 MG, FOUR TIMES DAILY
     Route: 048
  7. CITALOPRAM HYDROBROMIDE. [Concomitant]
     Active Substance: CITALOPRAM HYDROBROMIDE
     Dosage: 20 MG, QD
  8. EFFEXOR XR [Concomitant]
     Active Substance: VENLAFAXINE HYDROCHLORIDE

REACTIONS (9)
  - Stress [Unknown]
  - Arthralgia [Unknown]
  - Middle insomnia [Unknown]
  - Carpal tunnel syndrome [Unknown]
  - Joint injury [Unknown]
  - Pain in extremity [Unknown]
  - Poor quality sleep [Unknown]
  - Headache [Unknown]
  - Convulsion [Recovering/Resolving]
